FAERS Safety Report 10101692 (Version 1)
Quarter: 2014Q2

REPORT INFORMATION
  Report Type: Spontaneous
  Country: CN (occurrence: CN)
  Receive Date: 20140424
  Receipt Date: 20140424
  Transmission Date: 20141212
  Serious: Yes (Death)
  Sender: FDA-Public Use
  Company Number: CN-ROCHE-1386581

PATIENT
  Sex: 0

DRUGS (1)
  1. TAMIFLU [Suspect]
     Indication: PNEUMONIA
     Route: 065
     Dates: start: 20140321

REACTIONS (1)
  - Death [Fatal]
